FAERS Safety Report 10487779 (Version 1)
Quarter: 2014Q4

REPORT INFORMATION
  Report Type: Spontaneous
  Country: DE (occurrence: DE)
  Receive Date: 20141001
  Receipt Date: 20141001
  Transmission Date: 20150528
  Serious: Yes (Other)
  Sender: FDA-Public Use
  Company Number: DE-TEVA-512621GER

PATIENT
  Age: 6 Decade
  Sex: Male
  Weight: 66 kg

DRUGS (3)
  1. TAXOTERE [Suspect]
     Active Substance: DOCETAXEL
     Indication: OESOPHAGEAL CARCINOMA
     Dosage: LAST DOSE PRIOR TO ONSET OF AE: 24.03.2014
     Route: 042
     Dates: start: 20140324
  2. FLUOROURACIL. [Suspect]
     Active Substance: FLUOROURACIL
     Indication: OESOPHAGEAL CARCINOMA
     Dosage: LAST DOSE PRIOR TO ONSET OF AE: 28.03.2014
     Route: 042
     Dates: start: 20140324
  3. CISPLATIN. [Suspect]
     Active Substance: CISPLATIN
     Indication: OESOPHAGEAL CARCINOMA
     Dosage: LAST DOSE PRIOR TO ONSET OF AE: 24.03.2014
     Route: 042
     Dates: start: 20140324

REACTIONS (1)
  - Pneumonia [Unknown]

NARRATIVE: CASE EVENT DATE: 2014
